FAERS Safety Report 8595747 (Version 7)
Quarter: 2012Q4

REPORT INFORMATION
  Report Type: 
  Country: AU (occurrence: AU)
  Receive Date: 20120604
  Receipt Date: 20121123
  Transmission Date: 20130627
  Serious: Yes (Hospitalization, Other)
  Sender: FDA-Public Use
  Company Number: AU-AMGEN-AUSSP2012034083

PATIENT
  Age: 76 Year
  Sex: Male

DRUGS (9)
  1. XGEVA [Suspect]
     Indication: PROSTATE CANCER METASTATIC
     Dosage: 120 mg, q4wk
     Route: 058
     Dates: start: 20120215
  2. VITAMIN D /00107901/ [Concomitant]
     Indication: PROPHYLAXIS
     Route: 048
  3. CALCIUM [Concomitant]
  4. AVAPRO HCT [Concomitant]
     Dosage: UNK
     Dates: end: 20120325
  5. CHOLECALCIFEROL [Concomitant]
     Dosage: UNK unit, UNK
  6. CALCIUM CARBONATE [Concomitant]
     Dosage: 1200 mg, UNK
  7. INVESTIGATIONAL DRUG [Concomitant]
  8. ORTERONEL [Concomitant]
     Indication: PROSTATE CANCER
     Dosage: UNK
     Dates: end: 20120318
  9. ZOLADEX                            /00732101/ [Concomitant]
     Dosage: 10.8 mg, q3mo

REACTIONS (10)
  - Muscle spasms [Recovered/Resolved]
  - Tetany [Recovered/Resolved]
  - Convulsion [Recovered/Resolved]
  - Loss of consciousness [Not Recovered/Not Resolved]
  - Muscle rigidity [Not Recovered/Not Resolved]
  - Electrocardiogram QRS complex prolonged [Not Recovered/Not Resolved]
  - Nausea [Not Recovered/Not Resolved]
  - Hungry bone syndrome [Unknown]
  - Muscle twitching [Recovered/Resolved]
  - Hypocalcaemia [Recovered/Resolved]
